FAERS Safety Report 4658933-7 (Version None)
Quarter: 2005Q2

REPORT INFORMATION
  Report Type: 
  Country: None (occurrence: None)
  Receive Date: 20050509
  Receipt Date: 20050406
  Transmission Date: 20051028
  Serious: Yes (Other)
  Sender: FDA-Public Use
  Company Number: 2004225753US

PATIENT
  Sex: Female
  Weight: 68.0396 kg

DRUGS (3)
  1. PROVERA [Suspect]
     Indication: ILL-DEFINED DISORDER
  2. OGEN [Suspect]
     Indication: ILL-DEFINED DISORDER
     Dates: start: 19660101, end: 19960101
  3. DOXEPIN HYDROCHLORIDE (DOXEPIN HYDROCHLORIDE) [Concomitant]

REACTIONS (1)
  - OVARIAN CANCER [None]
